FAERS Safety Report 23889759 (Version 1)
Quarter: 2024Q2

REPORT INFORMATION
  Report Type: Spontaneous
  Country: CN (occurrence: CN)
  Receive Date: 20240523
  Receipt Date: 20240523
  Transmission Date: 20240716
  Serious: Yes (Other)
  Sender: FDA-Public Use
  Company Number: CN-CMSSWKJ-2024CMSSWKJ000357

PATIENT
  Age: 65 Year
  Sex: Male
  Weight: 90 kg

DRUGS (1)
  1. AETHOXYSKLEROL [Suspect]
     Active Substance: POLIDOCANOL
     Indication: Varicose vein
     Route: 042
     Dates: start: 20240513, end: 20240513

REACTIONS (2)
  - Syncope [Recovered/Resolved]
  - Loss of consciousness [Recovered/Resolved]

NARRATIVE: CASE EVENT DATE: 20240513
